FAERS Safety Report 13164561 (Version 1)
Quarter: 2017Q1

REPORT INFORMATION
  Report Type: Spontaneous
  Country: US (occurrence: US)
  Receive Date: 20170130
  Receipt Date: 20170130
  Transmission Date: 20170428
  Serious: Yes (Other)
  Sender: FDA-Public Use
  Company Number: US-BAYER-2016-224584

PATIENT
  Age: 75 Year
  Sex: Female
  Weight: 49.89 kg

DRUGS (11)
  1. OXYCODONE [Concomitant]
     Active Substance: OXYCODONE
     Indication: NECK PAIN
     Dosage: 5 MG, BID
     Route: 048
  2. EFFEXOR XR [Concomitant]
     Active Substance: VENLAFAXINE HYDROCHLORIDE
     Indication: ANXIETY
  3. LEVOTHYROXINE. [Concomitant]
     Active Substance: LEVOTHYROXINE
     Indication: HYPOTHYROIDISM
     Dosage: 0.025 MG, QD
     Route: 048
  4. EFFEXOR XR [Concomitant]
     Active Substance: VENLAFAXINE HYDROCHLORIDE
     Indication: PANIC ATTACK
  5. OXYCODONE [Concomitant]
     Active Substance: OXYCODONE
     Indication: MUSCULOSKELETAL PAIN
  6. BAYER GENUINE ASPIRIN [Suspect]
     Active Substance: ASPIRIN
     Dosage: UNK
  7. ALKA-SELTZER ORIGINAL [Suspect]
     Active Substance: ANHYDROUS CITRIC ACID\ASPIRIN\SODIUM BICARBONATE
     Indication: HEADACHE
     Dosage: 325 MG, 4-7 TIMES A DAY
     Route: 048
  8. EFFEXOR XR [Concomitant]
     Active Substance: VENLAFAXINE HYDROCHLORIDE
     Indication: DEPRESSION
     Dosage: 150 MG, QD
     Route: 048
  9. VERAPAMIL SLOW RELEASE [Concomitant]
     Indication: CHRONIC PAROXYSMAL HEMICRANIA
     Dosage: 180 MG, BID
     Route: 048
  10. CLONAZEPAM. [Concomitant]
     Active Substance: CLONAZEPAM
     Indication: ANXIETY
     Dosage: 0.5 MG, HS
     Route: 048
  11. LYRICA [Suspect]
     Active Substance: PREGABALIN
     Indication: SCIATIC NERVE NEUROPATHY
     Dosage: 50 MG, TID
     Route: 048
     Dates: start: 2015

REACTIONS (8)
  - Labelled drug-disease interaction medication error [None]
  - Rib fracture [Recovering/Resolving]
  - Hepatic enzyme increased [None]
  - Gastric ulcer [Unknown]
  - Aphasia [Not Recovered/Not Resolved]
  - Fall [Recovered/Resolved]
  - Drug administration error [None]
  - Product use issue [Unknown]

NARRATIVE: CASE EVENT DATE: 201512
